FAERS Safety Report 16954061 (Version 1)
Quarter: 2019Q4

REPORT INFORMATION
  Report Type: Spontaneous
  Country: US (occurrence: US)
  Receive Date: 20191023
  Receipt Date: 20191023
  Transmission Date: 20200122
  Serious: No
  Sender: FDA-Public Use
  Company Number: US-ABBVIE-19K-163-2905462-00

PATIENT
  Sex: Female

DRUGS (2)
  1. ORILISSA [Suspect]
     Active Substance: ELAGOLIX SODIUM
     Route: 048
     Dates: start: 201908
  2. ORILISSA [Suspect]
     Active Substance: ELAGOLIX SODIUM
     Indication: ENDOMETRIOSIS
     Route: 048
     Dates: start: 201810, end: 20190822

REACTIONS (5)
  - Mood swings [Unknown]
  - Endometriosis [Not Recovered/Not Resolved]
  - Fatigue [Unknown]
  - Emotional disorder [Unknown]
  - Depressed mood [Unknown]

NARRATIVE: CASE EVENT DATE: 201908
